FAERS Safety Report 8348335-4 (Version None)
Quarter: 2012Q2

REPORT INFORMATION
  Report Type: 
  Country: None (occurrence: None)
  Receive Date: 20120507
  Receipt Date: 20120420
  Transmission Date: 20120825
  Serious: Yes (Life-Threatening)
  Sender: FDA-Public Use
  Company Number: 1265577

PATIENT
  Age: 63 Year
  Sex: Female

DRUGS (6)
  1. SIMVASTATIN [Concomitant]
  2. GENTAMICIN SULFATE [Suspect]
     Indication: ANTIBIOTIC PROPHYLAXIS
     Dosage: 160 MG MILLIGRAM(S), INTRAVENOUS
     Route: 042
     Dates: start: 20120409, end: 20120409
  3. (TEICOPLANIN) [Suspect]
     Indication: ANTIBIOTIC PROPHYLAXIS
     Dosage: 600 MG MILLIGRAM(S), INTRAVENOUS
     Route: 042
     Dates: start: 20120409, end: 20120409
  4. (BENDROFLUMETHIAZIDE) [Concomitant]
  5. ATENOLOL [Concomitant]
  6. (RAMIPRIL) [Concomitant]

REACTIONS (2)
  - ANAPHYLACTIC REACTION [None]
  - CHILLS [None]
